FAERS Safety Report 7305177-6 (Version None)
Quarter: 2011Q1

REPORT INFORMATION
  Report Type: 
  Country: None (occurrence: None)
  Receive Date: 20110222
  Receipt Date: 20110210
  Transmission Date: 20110831
  Serious: Yes (Other)
  Sender: FDA-Public Use
  Company Number: JP-ELI_LILLY_AND_COMPANY-JP201101006628

PATIENT
  Age: 70 Year
  Sex: Male

DRUGS (5)
  1. SOLITA-T3 [Concomitant]
     Route: 042
  2. CARBOPLATIN [Concomitant]
     Route: 042
  3. FOLIC ACID [Concomitant]
  4. ALIMTA [Suspect]
     Indication: LUNG NEOPLASM MALIGNANT
     Dosage: 780 MG, OTHER
     Route: 042
     Dates: start: 20110114, end: 20110114
  5. VITAMIN B-12 [Concomitant]

REACTIONS (1)
  - VENTRICULAR EXTRASYSTOLES [None]
